FAERS Safety Report 20762801 (Version 1)
Quarter: 2022Q2

REPORT INFORMATION
  Report Type: Spontaneous
  Country: BR (occurrence: BR)
  Receive Date: 20220428
  Receipt Date: 20220428
  Transmission Date: 20220721
  Serious: Yes (Hospitalization, Other)
  Sender: FDA-Public Use
  Company Number: BR-NOVOPROD-911441

PATIENT
  Age: 44 Year
  Sex: Female
  Weight: 65.5 kg

DRUGS (6)
  1. INSULIN HUMAN [Suspect]
     Active Substance: INSULIN HUMAN
     Dosage: 30 IU, QD (20 IU AT MORNING AND 10 IU AT NIGHT)
     Route: 065
     Dates: start: 201809
  2. INSULIN HUMAN [Suspect]
     Active Substance: INSULIN HUMAN
     Dosage: 34 IU, QD (20 IU AT MORNING AND 14IU AT NIGHT)
     Route: 065
     Dates: start: 201902
  3. INSULIN HUMAN [Suspect]
     Active Substance: INSULIN HUMAN
     Dosage: 20 IU, BID
     Route: 065
     Dates: start: 202104, end: 202109
  4. INSULIN HUMAN [Suspect]
     Active Substance: INSULIN HUMAN
     Indication: Type 2 diabetes mellitus
     Dosage: 10 IU
     Route: 065
     Dates: start: 201504
  5. GLICLAZIDE [Concomitant]
     Active Substance: GLICLAZIDE
     Indication: Product used for unknown indication
     Dosage: 30 MG, QD (3 TABLETS AT MORNING)
     Route: 065
     Dates: start: 201504, end: 201809
  6. ALOGLIPTIN [Concomitant]
     Active Substance: ALOGLIPTIN
     Indication: Product used for unknown indication
     Dosage: UNK DOSE NOT REPORTED
     Route: 065
     Dates: start: 201509

REACTIONS (6)
  - COVID-19 [Unknown]
  - Accident at work [Unknown]
  - Thermal burn [Unknown]
  - Hypovitaminosis [Unknown]
  - Blood glucose increased [Unknown]
  - Inappropriate schedule of product administration [Unknown]

NARRATIVE: CASE EVENT DATE: 20160401
